FAERS Safety Report 9789996 (Version 1)
Quarter: 2013Q4

REPORT INFORMATION
  Report Type: Spontaneous
  Country: None (occurrence: None)
  Receive Date: 20131230
  Receipt Date: 20131230
  Transmission Date: 20140711
  Serious: Yes (Disabling)
  Sender: FDA-Public Use
  Company Number: None

PATIENT
  Age: 56 Year
  Sex: Male
  Weight: 108.86 kg

DRUGS (1)
  1. HUMIRA [Suspect]
     Dosage: 1 PREFILLED VIAL, GIVEN INTO/UNDER THE SKIN
     Dates: start: 20090601, end: 20131207

REACTIONS (6)
  - Pustular psoriasis [None]
  - Gait disturbance [None]
  - Pain in extremity [None]
  - Skin fissures [None]
  - Frustration [None]
  - Activities of daily living impaired [None]
